FAERS Safety Report 9073317 (Version 3)
Quarter: 2013Q2

REPORT INFORMATION
  Report Type: Report from Study
  Country: JP (occurrence: JP)
  Receive Date: 20130129
  Receipt Date: 20130427
  Transmission Date: 20140414
  Serious: Yes (Hospitalization)
  Sender: FDA-Public Use
  Company Number: JP-ABBOTT-13P-087-1039348-00

PATIENT
  Age: 53 Year
  Sex: Male

DRUGS (2)
  1. LIPACREON [Suspect]
     Indication: PANCREATIC INSUFFICIENCY
     Route: 048
     Dates: start: 20120225
  2. MOSAPRIDE CITRATE [Concomitant]
     Indication: PANCREATIC INSUFFICIENCY
     Route: 048
     Dates: start: 20120224

REACTIONS (2)
  - Haematemesis [Recovering/Resolving]
  - Gastrointestinal haemorrhage [Recovering/Resolving]
